FAERS Safety Report 7713921-9 (Version None)
Quarter: 2011Q3

REPORT INFORMATION
  Report Type: 
  Country: None (occurrence: None)
  Receive Date: 20110826
  Receipt Date: 20110822
  Transmission Date: 20111222
  Serious: Yes (Life-Threatening, Hospitalization, Disabling, Other)
  Sender: FDA-Public Use
  Company Number: US-GENENTECH-323424

PATIENT
  Sex: Male

DRUGS (3)
  1. RITUXIMAB [Suspect]
     Indication: IDIOPATHIC THROMBOCYTOPENIC PURPURA
  2. ROMIPLOSTIM [Suspect]
     Indication: IDIOPATHIC THROMBOCYTOPENIC PURPURA
     Dosage: 8 A?G/KG, 1/WEEK
     Dates: start: 20110125, end: 20110620
  3. DANAZOL [Concomitant]
     Indication: PRODUCT USED FOR UNKNOWN INDICATION

REACTIONS (15)
  - HAEMATOLOGICAL MALIGNANCY [None]
  - BONE MARROW RETICULIN FIBROSIS [None]
  - HAEMATOMA [None]
  - HAEMATURIA [None]
  - GINGIVAL BLEEDING [None]
  - INFLAMMATION [None]
  - MYELOFIBROSIS [None]
  - BACTERIAL DISEASE CARRIER [None]
  - THROMBOCYTOPENIA [None]
  - HEPATOSPLENOMEGALY [None]
  - GENERAL PHYSICAL HEALTH DETERIORATION [None]
  - URINARY BLADDER HAEMORRHAGE [None]
  - THERAPEUTIC RESPONSE DECREASED [None]
  - MOUTH HAEMORRHAGE [None]
  - BACTERIAL TEST POSITIVE [None]
